FAERS Safety Report 22291023 (Version 1)
Quarter: 2023Q2

REPORT INFORMATION
  Report Type: Report from Study
  Country: CA (occurrence: CA)
  Receive Date: 20230506
  Receipt Date: 20230506
  Transmission Date: 20230721
  Serious: Yes (Other)
  Sender: FDA-Public Use
  Company Number: CA-002147023-NVSC2023CA100273

PATIENT
  Age: 33 Year
  Sex: Female

DRUGS (1)
  1. HYRIMOZ [Suspect]
     Active Substance: ADALIMUMAB-ADAZ
     Indication: Hidradenitis
     Dosage: 80 MG
     Route: 058
     Dates: start: 20230429

REACTIONS (3)
  - Loss of consciousness [Unknown]
  - Anxiety [Unknown]
  - Fear of injection [Unknown]
